FAERS Safety Report 21807119 (Version 4)
Quarter: 2023Q1

REPORT INFORMATION
  Report Type: Report from Study
  Country: KR (occurrence: KR)
  Receive Date: 20230102
  Receipt Date: 20230224
  Transmission Date: 20230418
  Serious: Yes (Hospitalization)
  Sender: FDA-Public Use
  Company Number: KR-SEATTLE GENETICS-2022SGN12482

PATIENT
  Age: 56 Year
  Sex: Female
  Weight: 55.3 kg

DRUGS (12)
  1. TISOTUMAB VEDOTIN [Suspect]
     Active Substance: TISOTUMAB VEDOTIN
     Indication: Cervix carcinoma recurrent
     Dosage: 2 MG/KG, Q21D
     Route: 042
     Dates: start: 20221122
  2. PREMINA [ESTROGENS CONJUGATED] [Concomitant]
     Indication: Postmenopause
     Dosage: 0.3 MG
     Dates: start: 20171217
  3. METFORMIN [Concomitant]
     Active Substance: METFORMIN HYDROCHLORIDE
     Indication: Diabetes mellitus
     Dosage: 2000 MG
     Dates: start: 2016
  4. LIPINON [Concomitant]
     Indication: Hyperlipidaemia
     Dosage: 10 MG
     Dates: start: 2016
  5. LOSARTAN POTASSIUM [Concomitant]
     Active Substance: LOSARTAN POTASSIUM
     Indication: Hyperlipidaemia
     Dosage: 50 MG
     Dates: start: 2016
  6. ZEMIGLO [Concomitant]
     Indication: Diabetes mellitus
     Dosage: 50 MG
     Dates: start: 2016
  7. ANYCOUGH [THEOBROMINE] [Concomitant]
     Indication: Metastases to lung
     Dosage: 600 MG
     Dates: start: 20221102, end: 20221212
  8. RABEKHAN [Concomitant]
     Indication: Prophylaxis
     Dosage: 10 MG
     Dates: start: 20221102, end: 20221212
  9. EPERISONE HYDROCHLORIDE [Concomitant]
     Active Substance: EPERISONE HYDROCHLORIDE
     Indication: Back pain
     Dosage: 2 DF
     Dates: start: 20221108, end: 20221212
  10. MAGNESIUM OXIDE [Concomitant]
     Active Substance: MAGNESIUM OXIDE
     Indication: Constipation
     Dosage: 3 DF
     Dates: start: 20221108, end: 20221212
  11. SANCUSO [Concomitant]
     Active Substance: GRANISETRON
     Indication: Prophylaxis of nausea and vomiting
     Dosage: 34.3 MG
     Dates: start: 20221211, end: 20221211
  12. RAMOSETRON HYDROCHLORIDE [Concomitant]
     Active Substance: RAMOSETRON HYDROCHLORIDE
     Indication: Prophylaxis
     Dosage: 0.3 MG
     Dates: start: 20221212, end: 20221212

REACTIONS (1)
  - Enterocolitis infectious [Recovered/Resolved]

NARRATIVE: CASE EVENT DATE: 20221221
